FAERS Safety Report 17447783 (Version 1)
Quarter: 2020Q1

REPORT INFORMATION
  Report Type: Report from Study
  Country: EG (occurrence: EG)
  Receive Date: 20200221
  Receipt Date: 20200221
  Transmission Date: 20200409
  Serious: Yes (Death, Hospitalization)
  Sender: FDA-Public Use
  Company Number: NVSC2020EG045439

PATIENT
  Sex: Male

DRUGS (2)
  1. GLIVEC [Suspect]
     Active Substance: IMATINIB MESYLATE
     Indication: CHRONIC MYELOID LEUKAEMIA
     Dosage: 400 MG, QD (3 YEARS AGO GLIVEC 400MG TAB AND STOPPED ONE YEAR AGO)
     Route: 065
  2. GLIVEC [Suspect]
     Active Substance: IMATINIB MESYLATE
     Dosage: UNK (STARTED THE DRUG ONE YEAR AGO, THE OTHER ORAL CHEMOTHERAPY AND IT WAS ONGOING UNTILL DEATH)
     Route: 065

REACTIONS (5)
  - Chronic myeloid leukaemia [Fatal]
  - Gallbladder neoplasm [Not Recovered/Not Resolved]
  - Gallbladder obstruction [Not Recovered/Not Resolved]
  - Cytogenetic analysis abnormal [Not Recovered/Not Resolved]
  - Jaundice [Not Recovered/Not Resolved]

NARRATIVE: CASE EVENT DATE: 2019
